FAERS Safety Report 25529265 (Version 1)
Quarter: 2025Q3

REPORT INFORMATION
  Report Type: Other
  Country: EU (occurrence: EU)
  Receive Date: 20250708
  Receipt Date: 20250708
  Transmission Date: 20251021
  Serious: Yes (Death, Hospitalization, Other)
  Sender: ANI
  Company Number: EU-ANIPHARMA-023408

PATIENT
  Sex: Female

DRUGS (16)
  1. VALPROIC ACID [Suspect]
     Active Substance: VALPROIC ACID
     Indication: Epilepsy of infancy with migrating focal seizures
  2. PHENYTOIN [Suspect]
     Active Substance: PHENYTOIN
     Indication: Epilepsy of infancy with migrating focal seizures
  3. LEUCOVORIN [Suspect]
     Active Substance: LEUCOVORIN\LEUCOVORIN CALCIUM
     Indication: Epilepsy of infancy with migrating focal seizures
  4. PHENOBARBITAL [Concomitant]
     Active Substance: PHENOBARBITAL
     Indication: Epilepsy of infancy with migrating focal seizures
  5. MIDAZOLAM [Concomitant]
     Active Substance: MIDAZOLAM
     Indication: Epilepsy of infancy with migrating focal seizures
  6. KETAMINE [Concomitant]
     Active Substance: KETAMINE
     Indication: Epilepsy of infancy with migrating focal seizures
  7. THIOPENTAL SODIUM [Concomitant]
     Active Substance: THIOPENTAL SODIUM
     Indication: Epilepsy of infancy with migrating focal seizures
  8. LEVETIRACETAM [Concomitant]
     Active Substance: LEVETIRACETAM
     Indication: Epilepsy of infancy with migrating focal seizures
  9. TOPIRAMATE [Concomitant]
     Active Substance: TOPIRAMATE
     Indication: Epilepsy of infancy with migrating focal seizures
  10. LACOSAMIDE [Concomitant]
     Active Substance: LACOSAMIDE
     Indication: Epilepsy of infancy with migrating focal seizures
  11. LIDOCAINE [Concomitant]
     Active Substance: LIDOCAINE
     Indication: Epilepsy of infancy with migrating focal seizures
  12. PYRIDOXINE [Concomitant]
     Active Substance: PYRIDOXINE
     Indication: Epilepsy of infancy with migrating focal seizures
  13. PYRIDOXAL PHOSPHATE [Concomitant]
     Active Substance: PYRIDOXAL PHOSPHATE
     Indication: Epilepsy of infancy with migrating focal seizures
  14. POTASSIUM BROMIDE [Concomitant]
     Active Substance: POTASSIUM BROMIDE
     Indication: Epilepsy of infancy with migrating focal seizures
  15. VITAMIN D [Concomitant]
     Active Substance: VITAMIN D NOS
     Indication: Osteopenia
  16. CALCIUM [Concomitant]
     Active Substance: CALCIUM
     Indication: Osteopenia

REACTIONS (3)
  - Cholangitis [Fatal]
  - Cholestasis [Fatal]
  - Therapy non-responder [Unknown]
